FAERS Safety Report 8687428 (Version 2)
Quarter: 2013Q2

REPORT INFORMATION
  Report Type: Spontaneous
  Country: FR (occurrence: FR)
  Receive Date: 20120727
  Receipt Date: 20130618
  Transmission Date: 20140414
  Serious: Yes (Hospitalization)
  Sender: FDA-Public Use
  Company Number: FR-PFIZER INC-2012178185

PATIENT
  Age: 67 Year
  Sex: Male

DRUGS (2)
  1. TAZOCILLINE [Suspect]
     Indication: SEPTIC SHOCK
     Dosage: UNK
     Route: 042
     Dates: start: 20110701, end: 20110729
  2. VANCOMYCINE [Suspect]
     Indication: SEPTIC SHOCK
     Dosage: UNK
     Route: 042
     Dates: start: 20110701, end: 20110729

REACTIONS (1)
  - Dermatitis exfoliative [Recovered/Resolved]
